FAERS Safety Report 5290793-6 (Version None)
Quarter: 2007Q2

REPORT INFORMATION
  Report Type: 
  Country: None (occurrence: None)
  Receive Date: 20070409
  Receipt Date: 20070327
  Transmission Date: 20071010
  Serious: Yes (Other)
  Sender: FDA-Public Use
  Company Number: IE-PFIZER INC-2007025334

PATIENT
  Age: 59 Year
  Sex: Male

DRUGS (9)
  1. LYRICA [Suspect]
     Indication: NEUROPATHY PERIPHERAL
     Route: 048
  2. BUMETANIDE [Concomitant]
  3. PERINDOPRIL ERBUMINE [Concomitant]
  4. METOPROLOL SUCCINATE [Concomitant]
  5. DIGOXIN [Concomitant]
  6. WARFARIN SODIUM [Concomitant]
  7. INSULIN [Concomitant]
  8. METFORMIN HCL [Concomitant]
  9. PRAVASTATIN [Concomitant]

REACTIONS (2)
  - CARDIAC FAILURE [None]
  - CONDITION AGGRAVATED [None]
